FAERS Safety Report 9693562 (Version 1)
Quarter: 2013Q4

REPORT INFORMATION
  Report Type: Spontaneous
  Country: LB (occurrence: LB)
  Receive Date: 20131118
  Receipt Date: 20131118
  Transmission Date: 20140711
  Serious: Yes (Other)
  Sender: FDA-Public Use
  Company Number: LB-GLAXOSMITHKLINE-B0944841A

PATIENT
  Age: 7 Year
  Sex: Male

DRUGS (2)
  1. ZINNAT [Suspect]
     Indication: PHARYNGOTONSILLITIS
     Dosage: 250MG TWICE PER DAY
     Route: 065
  2. TYLENOL [Concomitant]

REACTIONS (2)
  - Oedema [Recovered/Resolved]
  - Rash generalised [Recovered/Resolved]
